FAERS Safety Report 6372949-4 (Version None)
Quarter: 2009Q3

REPORT INFORMATION
  Report Type: 
  Country: None (occurrence: None)
  Receive Date: 20090924
  Receipt Date: 20081210
  Transmission Date: 20100115
  Serious: No
  Sender: FDA-Public Use
  Company Number: US-ASTRAZENECA-2008UW27712

PATIENT
  Age: 54 Year
  Sex: Male

DRUGS (6)
  1. SEROQUEL XR [Suspect]
     Indication: BIPOLAR I DISORDER
     Route: 048
     Dates: start: 20081022, end: 20081209
  2. LEVOTHYROXINE SODIUM [Concomitant]
  3. DOXYCYCLINE [Concomitant]
     Indication: ACNE CYSTIC
  4. LITHIUM [Concomitant]
  5. TYLENOL (CAPLET) [Concomitant]
     Indication: ARTHRITIS
  6. TYLENOL (CAPLET) [Concomitant]
     Indication: ARTHRALGIA

REACTIONS (3)
  - ARTHRALGIA [None]
  - DYSURIA [None]
  - POLLAKIURIA [None]
